FAERS Safety Report 9753327 (Version 1)
Quarter: 2013Q4

REPORT INFORMATION
  Report Type: Report from Study
  Country: US (occurrence: US)
  Receive Date: 20131213
  Receipt Date: 20131213
  Transmission Date: 20140711
  Serious: Yes (Hospitalization, Other)
  Sender: FDA-Public Use
  Company Number: US-ABBVIE-13P-163-1176094-00

PATIENT
  Sex: Female
  Weight: 97.61 kg

DRUGS (11)
  1. HUMIRA [Suspect]
     Indication: RHEUMATOID ARTHRITIS
     Dates: start: 2010, end: 2012
  2. HUMIRA [Suspect]
  3. HUMIRA [Suspect]
     Indication: RHEUMATOID ARTHRITIS
     Dates: end: 201311
  4. HUMIRA [Suspect]
  5. METHOTREXATE [Concomitant]
     Indication: RHEUMATOID ARTHRITIS
  6. ACYCLOVIR [Concomitant]
     Indication: HERPES SIMPLEX
  7. ACYCLOVIR [Concomitant]
     Indication: PROPHYLAXIS
  8. MELOXICAM [Concomitant]
     Indication: RHEUMATOID ARTHRITIS
  9. CALCIUM + VITAMIN D [Concomitant]
     Indication: VITAMIN SUPPLEMENTATION
  10. FOLIC ACID [Concomitant]
     Indication: VITAMIN SUPPLEMENTATION
  11. PREDNISONE [Concomitant]
     Indication: RHEUMATOID ARTHRITIS

REACTIONS (10)
  - Arrhythmia [Recovered/Resolved]
  - Hypertrophic cardiomyopathy [Not Recovered/Not Resolved]
  - Fluid retention [Recovered/Resolved]
  - Weight increased [Recovered/Resolved]
  - Local swelling [Recovered/Resolved]
  - Injection site pain [Not Recovered/Not Resolved]
  - Bronchitis [Recovered/Resolved]
  - Fluid retention [Unknown]
  - Weight increased [Unknown]
  - Local swelling [Unknown]
